FAERS Safety Report 23503938 (Version 1)
Quarter: 2024Q1

REPORT INFORMATION
  Report Type: Spontaneous
  Country: US (occurrence: US)
  Receive Date: 20240209
  Receipt Date: 20240209
  Transmission Date: 20240409
  Serious: No
  Sender: FDA-Public Use
  Company Number: US-BRISTOL-MYERS SQUIBB COMPANY-2024-018437

PATIENT
  Age: 45 Year
  Sex: Male
  Weight: 111.13 kg

DRUGS (2)
  1. NULOJIX [Suspect]
     Active Substance: BELATACEPT
     Indication: Chronic kidney disease
     Route: 042
     Dates: start: 20231230
  2. NULOJIX [Suspect]
     Active Substance: BELATACEPT
     Indication: Heart transplant

REACTIONS (2)
  - Product dose omission issue [Unknown]
  - Off label use [Unknown]

NARRATIVE: CASE EVENT DATE: 20240130
